FAERS Safety Report 24751753 (Version 1)
Quarter: 2024Q4

REPORT INFORMATION
  Report Type: Spontaneous
  Country: US (occurrence: US)
  Receive Date: 20241219
  Receipt Date: 20241219
  Transmission Date: 20250115
  Serious: No
  Sender: REVANCE THERAPEUTICS
  Company Number: US-REVANCE THERAPEUTICS INC.-US-REV-2024-000608

PATIENT

DRUGS (3)
  1. DAXIBOTULINUMTOXIN A-LANM [Suspect]
     Active Substance: DAXIBOTULINUMTOXIN A-LANM
     Indication: Skin wrinkling
     Dosage: TOTAL 80 U: GLABELLA (40 U), FOREHEAD LINES (40 U)
     Route: 065
     Dates: start: 20240823
  2. DAXIBOTULINUMTOXIN A-LANM [Suspect]
     Active Substance: DAXIBOTULINUMTOXIN A-LANM
     Dosage: UNK
     Dates: start: 20241017
  3. RETINOL [Concomitant]
     Active Substance: RETINOL
     Indication: Product used for unknown indication
     Dosage: UNK
     Route: 065
     Dates: start: 20240821

REACTIONS (3)
  - Facial discomfort [Not Recovered/Not Resolved]
  - No adverse event [Unknown]
  - Off label use [Unknown]

NARRATIVE: CASE EVENT DATE: 20240823
